FAERS Safety Report 6342078-4 (Version None)
Quarter: 2009Q3

REPORT INFORMATION
  Report Type: 
  Country: None (occurrence: None)
  Receive Date: 20090903
  Receipt Date: 20090818
  Transmission Date: 20100115
  Serious: Yes (Hospitalization)
  Sender: FDA-Public Use
  Company Number: 002723

PATIENT
  Age: 61 Year
  Sex: Female

DRUGS (11)
  1. MACUGEN [Suspect]
     Indication: MACULAR DEGENERATION
     Dosage: 1 EVERY 6 WEEKS, INTRAOCULAR
     Route: 031
     Dates: start: 20070127
  2. VASILIP (SIMVASTATIN) [Concomitant]
  3. CIPLOX (CIPROFLOXACIN HYDROCHLORIDE) [Concomitant]
  4. VOLTAREN [Concomitant]
  5. IBUPROFEN [Concomitant]
  6. CIPRINOL (CIPROFLOXACIN) [Concomitant]
  7. EDICIN (VANCOMYCIN HYDROCHLORIDE) [Concomitant]
  8. CIPHIN (CIPROFLOXACIN HYDROCHLORIDE) [Concomitant]
  9. DOLMINA (ACETYLSALICYLIC ACID, GUAIFENESIN) [Concomitant]
  10. TROPICAMIDE [Concomitant]
  11. AZOPT [Concomitant]

REACTIONS (2)
  - CATARACT [None]
  - ENDOPHTHALMITIS [None]
